FAERS Safety Report 7977582-6 (Version None)
Quarter: 2011Q4

REPORT INFORMATION
  Report Type: 
  Country: None (occurrence: None)
  Receive Date: 20111214
  Receipt Date: 20111123
  Transmission Date: 20120403
  Serious: No
  Sender: FDA-Public Use
  Company Number: US-AMGEN-USASP2011057242

PATIENT
  Age: 63 Year
  Sex: Female
  Weight: 95.692 kg

DRUGS (1)
  1. ENBREL [Suspect]
     Indication: PSORIASIS
     Dosage: 50 MG, 2 TIMES/WK
     Route: 058
     Dates: start: 20110306

REACTIONS (6)
  - ARTHRALGIA [None]
  - PYREXIA [None]
  - ABDOMINAL PAIN [None]
  - COUGH [None]
  - BACK PAIN [None]
  - INFLUENZA LIKE ILLNESS [None]
